FAERS Safety Report 10473777 (Version 1)
Quarter: 2014Q3

REPORT INFORMATION
  Report Type: Spontaneous
  Country: JP (occurrence: JP)
  Receive Date: 20140924
  Receipt Date: 20140924
  Transmission Date: 20150326
  Serious: Yes (Hospitalization)
  Sender: FDA-Public Use
  Company Number: PHHY2014JP119724

PATIENT
  Age: 61 Year
  Sex: Female

DRUGS (4)
  1. EPIRUBICIN [Suspect]
     Active Substance: EPIRUBICIN
     Indication: BREAST CANCER FEMALE
     Dosage: 240 MG/M2 CUMULATIVE DOSE
     Dates: start: 200702, end: 200704
  2. 5-FLUOROURACIL [Suspect]
     Active Substance: FLUOROURACIL
     Indication: BREAST CANCER FEMALE
     Dosage: 2000 MG/M2 CUMULATIVE DOSE
     Dates: start: 200702, end: 200704
  3. CYCLOPHOSPHAMIDE. [Suspect]
     Active Substance: CYCLOPHOSPHAMIDE
     Indication: BREAST CANCER FEMALE
     Dates: start: 200702, end: 200704
  4. IRRADIATION [Suspect]
     Active Substance: UNSPECIFIED INGREDIENT
     Indication: BREAST CANCER FEMALE
     Dates: start: 200705

REACTIONS (19)
  - Orthopnoea [Recovered/Resolved]
  - Cardiomegaly [Recovered/Resolved]
  - Cardiotoxicity [Unknown]
  - Oedema peripheral [Recovered/Resolved]
  - Dyspnoea [Recovered/Resolved]
  - Ventricular hypokinesia [Recovered/Resolved]
  - N-terminal prohormone brain natriuretic peptide increased [Recovered/Resolved]
  - Pulmonary congestion [Recovered/Resolved]
  - Left ventricular end-diastolic pressure increased [Recovered/Resolved]
  - Pleural effusion [Recovered/Resolved]
  - Weight increased [Unknown]
  - Electrocardiogram ST-T segment depression [Recovered/Resolved]
  - Cardiac failure [Recovered/Resolved]
  - Endocardial fibrosis [Recovered/Resolved]
  - Fatigue [Recovered/Resolved]
  - QRS axis abnormal [Recovered/Resolved]
  - Decreased appetite [Recovered/Resolved]
  - Rales [Recovered/Resolved]
  - Acute pulmonary oedema [Recovered/Resolved]

NARRATIVE: CASE EVENT DATE: 201205
